FAERS Safety Report 7240752-9 (Version None)
Quarter: 2011Q1

REPORT INFORMATION
  Report Type: 
  Country: None (occurrence: None)
  Receive Date: 20110124
  Receipt Date: 20110113
  Transmission Date: 20110831
  Serious: No
  Sender: FDA-Public Use
  Company Number: US-ROXANE LABORATORIES, INC.-2011-RO-00085RO

PATIENT
  Age: 79 Year
  Sex: Male

DRUGS (2)
  1. ROXICET [Suspect]
     Route: 048
     Dates: start: 20101104
  2. ROXICET [Suspect]
     Indication: BONE PAIN
     Route: 048
     Dates: start: 20100525, end: 20101104

REACTIONS (2)
  - IRRITABILITY [None]
  - FATIGUE [None]
